FAERS Safety Report 17457544 (Version 3)
Quarter: 2020Q4

REPORT INFORMATION
  Report Type: Report from Study
  Country: GB (occurrence: GB)
  Receive Date: 20200225
  Receipt Date: 20201230
  Transmission Date: 20210113
  Serious: Yes (Death, Hospitalization)
  Sender: FDA-Public Use
  Company Number: GB-MYLANLABS-2020M1019290

PATIENT
  Age: 79 Year
  Sex: Female

DRUGS (13)
  1. SODIUM VALPROATE [Concomitant]
     Active Substance: VALPROATE SODIUM
     Dosage: 1 GRAM, QD
     Route: 048
     Dates: start: 20181019, end: 20181105
  2. DEXAMETHASONE. [Concomitant]
     Active Substance: DEXAMETHASONE
     Dosage: 4 MILLIGRAM, BID
     Route: 048
     Dates: start: 20181015, end: 20181105
  3. SODIUM VALPROATE [Concomitant]
     Active Substance: VALPROATE SODIUM
     Dosage: 1 GRAM, QD
     Route: 048
     Dates: start: 20181019, end: 20181105
  4. FORTIJUICE [Concomitant]
     Dosage: 200 MILLILITER
     Route: 048
     Dates: start: 20181017, end: 20181105
  5. BISOPROLOL [Concomitant]
     Active Substance: BISOPROLOL
     Dosage: 5 MILLIGRAM, QD
     Route: 048
     Dates: start: 20181105
  6. METOCLOPRAMIDE. [Concomitant]
     Active Substance: METOCLOPRAMIDE
     Dosage: 10 MILLIGRAM, PRN
     Route: 048
     Dates: start: 20171106, end: 20181105
  7. METOCLOPRAMIDE. [Concomitant]
     Active Substance: METOCLOPRAMIDE
     Dosage: 20 MILLIGRAM
     Route: 042
     Dates: start: 20171106, end: 20181105
  8. SODIUM VALPROATE [Concomitant]
     Active Substance: VALPROATE SODIUM
     Dosage: 500 MILLIGRAM, QD
     Route: 048
     Dates: start: 20181017, end: 20181018
  9. CAPECITABINE. [Suspect]
     Active Substance: CAPECITABINE
     Indication: HER2 POSITIVE BREAST CANCER
     Dosage: 1500 MILLIGRAM
     Route: 048
     Dates: start: 20180605, end: 20181001
  10. LANSOPRAZOLE. [Concomitant]
     Active Substance: LANSOPRAZOLE
     Dosage: 30 MILLIGRAM, QD
     Route: 048
     Dates: start: 20181015, end: 20181105
  11. TRASTUZUMAB. [Suspect]
     Active Substance: TRASTUZUMAB
     Indication: HER2 POSITIVE BREAST CANCER
     Dosage: 220 MILLIGRAM
     Route: 042
     Dates: start: 20171106, end: 20180424
  12. LOPERAMIDE [Concomitant]
     Active Substance: LOPERAMIDE
     Dosage: 2 MILLIGRAM, PRN
     Route: 048
     Dates: start: 20180605, end: 20181105
  13. ZOPICLONE [Concomitant]
     Active Substance: ZOPICLONE
     Dosage: 7.5 MILLIGRAM, PRN
     Route: 048
     Dates: start: 20181015, end: 20181105

REACTIONS (5)
  - Nausea [Recovered/Resolved]
  - Neurological symptom [Recovered/Resolved]
  - Disease progression [Fatal]
  - Chest discomfort [Not Recovered/Not Resolved]
  - Headache [Recovered/Resolved]

NARRATIVE: CASE EVENT DATE: 20180201
